FAERS Safety Report 26103724 (Version 2)
Quarter: 2025Q4

REPORT INFORMATION
  Report Type: Report from Study
  Country: US (occurrence: US)
  Receive Date: 20251129
  Receipt Date: 20251230
  Transmission Date: 20260118
  Serious: Yes (Other)
  Sender: ALEXION PHARMACEUTICALS
  Company Number: US-AstraZeneca-CH-01002686A

PATIENT
  Sex: Male

DRUGS (1)
  1. ACALABRUTINIB [Suspect]
     Active Substance: ACALABRUTINIB
     Indication: Chronic lymphocytic leukaemia
     Dosage: 100 MILLIGRAM, BID
     Route: 061
     Dates: start: 202309

REACTIONS (11)
  - Dementia [Unknown]
  - Type 2 diabetes mellitus [Unknown]
  - Somnolence [Unknown]
  - Balance disorder [Unknown]
  - Memory impairment [Unknown]
  - Product dose omission issue [Unknown]
  - Fatigue [Unknown]
  - Diarrhoea [Unknown]
  - Weight decreased [Unknown]
  - Urinary tract infection [Unknown]
  - Anaemia [Unknown]
